FAERS Safety Report 8005856-1 (Version None)
Quarter: 2011Q4

REPORT INFORMATION
  Report Type: 
  Country: None (occurrence: None)
  Receive Date: 20111223
  Receipt Date: 20111219
  Transmission Date: 20120403
  Serious: Yes (Death)
  Sender: FDA-Public Use
  Company Number: CN-ASTRAZENECA-2011SE76685

PATIENT
  Age: 43 Year
  Sex: Male

DRUGS (1)
  1. LIDOCAINE [Suspect]
     Dosage: OVERDOSE
     Route: 041

REACTIONS (3)
  - OVERDOSE [None]
  - HOMICIDE [None]
  - ARRHYTHMIA [None]
